FAERS Safety Report 9575080 (Version 2)
Quarter: 2013Q4

REPORT INFORMATION
  Report Type: Spontaneous
  Country: US (occurrence: US)
  Receive Date: 20131001
  Receipt Date: 20131001
  Transmission Date: 20140711
  Serious: No
  Sender: FDA-Public Use
  Company Number: US-ASTRAZENECA-2012SE60262

PATIENT
  Age: 65 Year
  Sex: Male
  Weight: 102.1 kg

DRUGS (10)
  1. ZESTRIL [Suspect]
     Indication: BLOOD PRESSURE
     Route: 048
     Dates: end: 201207
  2. ZESTRIL [Suspect]
     Indication: BLOOD PRESSURE
     Route: 048
     Dates: end: 201209
  3. ZESTRIL [Suspect]
     Indication: BLOOD PRESSURE
     Dosage: GENERIC
     Route: 048
     Dates: start: 201209
  4. CIRTULLINE [Concomitant]
     Indication: POST-TRAUMATIC STRESS DISORDER
  5. CIRTULLINE [Concomitant]
     Indication: DEPRESSION
  6. ALPRAZOLAM [Concomitant]
     Indication: ANXIETY
  7. METOPROLOL TARTRATE [Concomitant]
     Indication: CORONARY ARTERY BYPASS
  8. AMLODIPINE [Concomitant]
     Indication: BLOOD PRESSURE
  9. SIMVASTATIN [Concomitant]
     Indication: BLOOD CHOLESTEROL
  10. ASPIRIN [Concomitant]

REACTIONS (4)
  - Glucose tolerance impaired [Unknown]
  - Blood cholesterol increased [Unknown]
  - Blood pressure increased [Unknown]
  - Drug ineffective [Unknown]
